FAERS Safety Report 11664649 (Version 1)
Quarter: 2015Q4

REPORT INFORMATION
  Report Type: Report from Study
  Country: US (occurrence: US)
  Receive Date: 20151027
  Receipt Date: 20151027
  Transmission Date: 20160304
  Serious: Yes (Hospitalization)
  Sender: FDA-Public Use
  Company Number: PHHY2014US121142

PATIENT
  Age: 7 Year
  Sex: Male
  Weight: 28 kg

DRUGS (7)
  1. HIDROXIUREA [Concomitant]
     Active Substance: HYDROXYUREA
     Indication: SICKLE CELL ANAEMIA
     Dosage: UNK UNK, QD
     Route: 048
  2. PENICILLIN-VK [Concomitant]
     Indication: SPLENECTOMY
     Dosage: 250 MG, UNK
     Route: 048
  3. ROCEPHIN [Concomitant]
     Active Substance: CEFTRIAXONE SODIUM
     Indication: PYREXIA
     Dosage: 1500 MG, UNK
     Route: 042
     Dates: start: 20141015, end: 20141015
  4. EXJADE [Suspect]
     Active Substance: DEFERASIROX
     Dosage: 500 MG, QD
     Route: 048
  5. FOLIC ACID. [Concomitant]
     Active Substance: FOLIC ACID
     Indication: SICKLE CELL ANAEMIA
     Dosage: 5 MG, UNK
     Route: 048
  6. HYDREA [Concomitant]
     Active Substance: HYDROXYUREA
     Indication: SICKLE CELL ANAEMIA
     Dosage: 900 MG, UNK
     Route: 048
  7. OMNICEF [Concomitant]
     Active Substance: CEFDINIR
     Indication: INFECTION
     Dosage: 200 MG, UNK
     Route: 048
     Dates: start: 20141016, end: 20141021

REACTIONS (4)
  - Back pain [Recovered/Resolved]
  - Sickle cell anaemia with crisis [Recovered/Resolved]
  - Pyrexia [Recovered/Resolved]
  - Back pain [Recovered/Resolved]

NARRATIVE: CASE EVENT DATE: 20140728
